FAERS Safety Report 14896289 (Version 1)
Quarter: 2018Q2

REPORT INFORMATION
  Report Type: Spontaneous
  Country: JP (occurrence: JP)
  Receive Date: 20180515
  Receipt Date: 20180515
  Transmission Date: 20180711
  Serious: Yes (Hospitalization)
  Sender: FDA-Public Use
  Company Number: JP-BAYER-2018-087236

PATIENT
  Age: 14 Year
  Sex: Male

DRUGS (1)
  1. GADOVIST [Suspect]
     Active Substance: GADOBUTROL
     Indication: NUCLEAR MAGNETIC RESONANCE IMAGING
     Dosage: 7.5 ML, ONCE
     Route: 042
     Dates: start: 20180501, end: 20180501

REACTIONS (3)
  - Blood pressure decreased [None]
  - Tachycardia [None]
  - Hypoaesthesia [None]

NARRATIVE: CASE EVENT DATE: 20180501
